FAERS Safety Report 16860768 (Version 1)
Quarter: 2019Q3

REPORT INFORMATION
  Report Type: Report from Study
  Country: US (occurrence: US)
  Receive Date: 20190927
  Receipt Date: 20190927
  Transmission Date: 20191005
  Serious: No
  Sender: FDA-Public Use
  Company Number: PHEH2019US039848

PATIENT
  Age: 50 Year
  Sex: Female

DRUGS (1)
  1. COSENTYX [Suspect]
     Active Substance: SECUKINUMAB
     Indication: PSORIASIS
     Dosage: 300 MG, UNK
     Route: 065

REACTIONS (9)
  - Rash [Unknown]
  - Discharge [Unknown]
  - Dry skin [Unknown]
  - Skin plaque [Unknown]
  - Erythema [Unknown]
  - Skin hypertrophy [Unknown]
  - Skin mass [Unknown]
  - Skin lesion [Unknown]
  - Stomatitis [Unknown]
